FAERS Safety Report 19096675 (Version 1)
Quarter: 2021Q2

REPORT INFORMATION
  Report Type: Spontaneous
  Country: US (occurrence: US)
  Receive Date: 20210405
  Receipt Date: 20210405
  Transmission Date: 20210717
  Serious: Yes (Hospitalization)
  Sender: FDA-Public Use
  Company Number: None

PATIENT
  Age: 74 Year
  Sex: Female

DRUGS (1)
  1. AVONEX [Suspect]
     Active Substance: INTERFERON BETA-1A
     Indication: MULTIPLE SCLEROSIS
     Dosage: ?          OTHER DOSE:30MCG;?
     Route: 030
     Dates: start: 20130131

REACTIONS (3)
  - Fall [None]
  - Peripheral swelling [None]
  - Thrombosis [None]

NARRATIVE: CASE EVENT DATE: 20210321
